FAERS Safety Report 15116564 (Version 1)
Quarter: 2018Q3

REPORT INFORMATION
  Report Type: Spontaneous
  Country: US (occurrence: US)
  Receive Date: 20180706
  Receipt Date: 20180706
  Transmission Date: 20181010
  Serious: No
  Sender: FDA-Public Use
  Company Number: US-ASTRAZENECA-2018SE83316

PATIENT
  Age: 4100 Week
  Sex: Female
  Weight: 72.6 kg

DRUGS (2)
  1. BRILINTA [Suspect]
     Active Substance: TICAGRELOR
     Indication: ANGIOGRAM
     Route: 048
     Dates: start: 20180615
  2. BRILINTA [Suspect]
     Active Substance: TICAGRELOR
     Indication: STENT PLACEMENT
     Route: 048
     Dates: start: 20180615

REACTIONS (1)
  - Mastitis [Not Recovered/Not Resolved]

NARRATIVE: CASE EVENT DATE: 20180621
